FAERS Safety Report 24897329 (Version 2)
Quarter: 2025Q1

REPORT INFORMATION
  Report Type: Report from Study
  Country: US (occurrence: US)
  Receive Date: 20250129
  Receipt Date: 20250209
  Transmission Date: 20250409
  Serious: Yes (Hospitalization, Other)
  Sender: ABBVIE
  Company Number: US-ABBVIE-6104115

PATIENT
  Age: 59 Year
  Sex: Female
  Weight: 97.068 kg

DRUGS (10)
  1. SKYRIZI [Suspect]
     Active Substance: RISANKIZUMAB-RZAA
     Indication: Psoriatic arthropathy
     Route: 058
     Dates: start: 20240129, end: 20240129
  2. SKYRIZI [Suspect]
     Active Substance: RISANKIZUMAB-RZAA
     Route: 058
     Dates: start: 20240101, end: 20240101
  3. SKYRIZI [Suspect]
     Active Substance: RISANKIZUMAB-RZAA
     Dosage: FORM STRENGTH: 150?FORM STRENGTH UNITS: MILLIGRAM?FREQUENCY TEXT: WEEK 4
     Route: 058
     Dates: start: 20240422, end: 20241007
  4. CARVEDILOL [Concomitant]
     Active Substance: CARVEDILOL
     Indication: Hypertension
     Dosage: FORM STRENGTH: 6.25?FORM STRENGTH UNITS: MILLIGRAM
  5. DULOXETINE [Concomitant]
     Active Substance: DULOXETINE
     Indication: Fibromyalgia
     Dosage: FORM STRENGTH: 60?FORM STRENGTH UNITS: MILLIGRAM
  6. IRBESARTAN [Concomitant]
     Active Substance: IRBESARTAN
     Indication: Hypertension
     Dosage: FORM STRENGTH: 300?FORM STRENGTH UNITS: MILLIGRAM
  7. NEXIUM [Concomitant]
     Active Substance: ESOMEPRAZOLE MAGNESIUM
     Indication: Gastrooesophageal reflux disease
     Dosage: FORM STRENGTH: 40?FORM STRENGTH UNITS: MILLIGRAM
  8. ATORVASTATIN [Concomitant]
     Active Substance: ATORVASTATIN
     Indication: Hyperlipidaemia
     Dosage: FORM STRENGTH: 20?FORM STRENGTH UNITS: MILLIGRAM
  9. OZEMPIC [Concomitant]
     Active Substance: SEMAGLUTIDE
     Indication: Diabetes mellitus
  10. METHOTREXATE [Concomitant]
     Active Substance: METHOTREXATE
     Indication: Psoriatic arthropathy
     Dosage: FORM STRENGTH: 20?FORM STRENGTH UNITS: MILLIGRAM
     Dates: end: 20241230

REACTIONS (5)
  - Breast cancer [Recovering/Resolving]
  - Breast reconstruction [Recovering/Resolving]
  - Skin exfoliation [Unknown]
  - Breast calcifications [Recovered/Resolved]
  - Post procedural complication [Recovering/Resolving]

NARRATIVE: CASE EVENT DATE: 20240601
